FAERS Safety Report 9943121 (Version 9)
Quarter: 2015Q3

REPORT INFORMATION
  Report Type: Report from Study
  Country: BR (occurrence: BR)
  Receive Date: 20140303
  Receipt Date: 20150701
  Transmission Date: 20151125
  Serious: Yes (Hospitalization)
  Sender: FDA-Public Use
  Company Number: BR-SA-2014SA020656

PATIENT
  Age: 39 Year
  Sex: Female
  Weight: 75.6 kg

DRUGS (2)
  1. ALEMTUZUMAB [Suspect]
     Active Substance: ALEMTUZUMAB
     Indication: MULTIPLE SCLEROSIS
     Route: 042
  2. MICRONOR [Concomitant]
     Active Substance: NORETHINDRONE
     Indication: PROPHYLAXIS
     Route: 048
     Dates: start: 20140613

REACTIONS (2)
  - Menometrorrhagia [Recovered/Resolved]
  - Anaemia [Recovered/Resolved]

NARRATIVE: CASE EVENT DATE: 20131219
